FAERS Safety Report 9543956 (Version 2)
Quarter: 2013Q3

REPORT INFORMATION
  Report Type: Spontaneous
  Country: US (occurrence: US)
  Receive Date: 20130923
  Receipt Date: 20130923
  Transmission Date: 20140515
  Serious: Yes (Hospitalization, Other)
  Sender: FDA-Public Use
  Company Number: US-GILEAD-2013-0080889

PATIENT
  Sex: Female

DRUGS (15)
  1. LETAIRIS [Suspect]
     Indication: PULMONARY HYPERTENSION
     Dates: start: 20130711
  2. FUROSEMIDE [Concomitant]
  3. GABAPENTINE [Concomitant]
  4. LANTUS [Concomitant]
  5. ROPINIROLE [Concomitant]
  6. NOVOLOG [Concomitant]
  7. PRILOSEC                           /00661201/ [Concomitant]
  8. KLOR-CON M10 [Concomitant]
  9. WARFARIN [Concomitant]
  10. ZOLPIDEM [Concomitant]
  11. RAMIPRIL [Concomitant]
  12. CLARITIN                           /00413701/ [Concomitant]
  13. DIGOXIN [Concomitant]
  14. FLOVENT HFA [Concomitant]
  15. METOPROLOL TARTRATE [Concomitant]

REACTIONS (3)
  - Sick sinus syndrome [Unknown]
  - Fluid retention [Unknown]
  - Renal impairment [Unknown]
